FAERS Safety Report 8530834-3 (Version None)
Quarter: 2012Q3

REPORT INFORMATION
  Report Type: 
  Country: None (occurrence: None)
  Receive Date: 20120723
  Receipt Date: 20120715
  Transmission Date: 20120928
  Serious: Yes (Other)
  Sender: FDA-Public Use
  Company Number: DE-UCBSA-061818

PATIENT
  Age: 43 Year
  Sex: Male

DRUGS (4)
  1. KEPPRA [Suspect]
     Dosage: ORAL INGESTION NOT ASSURED
     Route: 048
  2. LEVOMEPROMAZIN [Suspect]
     Dosage: ORAL INGESTION NOT ASSURED
     Route: 048
  3. NEUROCIL [Suspect]
     Dosage: ORAL INGESTION NOT ASSURED
     Route: 048
  4. NOVALGIN [Suspect]
     Dosage: ORAL INGESTION NOT ASSURED
     Route: 048

REACTIONS (3)
  - DIASTOLIC HYPOTENSION [None]
  - BLOOD PRESSURE SYSTOLIC DECREASED [None]
  - SUICIDE ATTEMPT [None]
